FAERS Safety Report 16314333 (Version 1)
Quarter: 2019Q2

REPORT INFORMATION
  Report Type: Spontaneous
  Country: US (occurrence: US)
  Receive Date: 20190514
  Receipt Date: 20190514
  Transmission Date: 20190711
  Serious: Yes (Hospitalization)
  Sender: FDA-Public Use
  Company Number: None

PATIENT
  Sex: Female

DRUGS (6)
  1. MESALAMINE TABLET 1.2 GRAM [Concomitant]
     Dates: start: 20190225
  2. CLOBETASOL OINTMENT 0.05% [Concomitant]
     Dates: start: 20190426
  3. METHOTREXATE. [Suspect]
     Active Substance: METHOTREXATE
     Indication: PSORIASIS
  4. ATENOLOL TABLETS 50 MG [Concomitant]
     Dates: start: 20190205
  5. PREDNISONE 10MG TABLETS [Concomitant]
     Active Substance: PREDNISONE
     Dates: start: 20190411
  6. CLOBETASOL SOLUTION 0.05% [Concomitant]
     Dates: start: 20190505

REACTIONS (1)
  - Hospitalisation [None]
